FAERS Safety Report 14940070 (Version 1)
Quarter: 2018Q2

REPORT INFORMATION
  Report Type: Spontaneous
  Country: DE (occurrence: DE)
  Receive Date: 20180525
  Receipt Date: 20180525
  Transmission Date: 20180711
  Serious: Yes (Hospitalization)
  Sender: FDA-Public Use
  Company Number: DE-ANIPHARMA-2018-DE-000096

PATIENT
  Age: 86 Year
  Sex: Female

DRUGS (16)
  1. KALIUM-MAGNESIUM [Concomitant]
     Dosage: 2 DF DAILY
     Route: 048
  2. MAGNESIUM [Concomitant]
     Active Substance: MAGNESIUM
     Dosage: 1 DF UNK
     Route: 048
  3. METOPROLOL. [Concomitant]
     Active Substance: METOPROLOL
     Dosage: 1 DF UNK
     Route: 048
  4. INDAPAMIDE. [Suspect]
     Active Substance: INDAPAMIDE
     Dosage: 1 DF QD
     Route: 048
  5. CANDESARTAN CILEXETIL. [Suspect]
     Active Substance: CANDESARTAN CILEXETIL
     Dosage: 1 DF QD
     Route: 048
  6. HYDROCHLOROTHIAZIDE. [Suspect]
     Active Substance: HYDROCHLOROTHIAZIDE
     Dosage: 1 DF QD
     Route: 048
  7. DOXAZOSIN [Concomitant]
     Active Substance: DOXAZOSIN\DOXAZOSIN MESYLATE
     Dosage: 1 DF
     Route: 048
  8. PRAZEPAM [Concomitant]
     Active Substance: PRAZEPAM
     Dosage: 1 DF UNK
     Route: 048
  9. TRIMIPRAMINE [Concomitant]
     Active Substance: TRIMIPRAMINE
     Dosage: 1 DF UNK
     Route: 048
  10. SULPIRIDE [Concomitant]
     Active Substance: SULPIRIDE
     Dosage: 1 DF UNK
     Route: 048
  11. TORASEMIDE [Suspect]
     Active Substance: TORSEMIDE
     Dosage: 4 DF DAILY
     Route: 048
  12. TOCOPHEROL [Concomitant]
     Active Substance: TOCOPHEROL
     Dosage: 1 DF UNK
     Route: 048
  13. LEVOTHYROXINE. [Concomitant]
     Active Substance: LEVOTHYROXINE
     Dosage: 1 DF UNK
     Route: 048
  14. RIVAROXABAN [Suspect]
     Active Substance: RIVAROXABAN
     Dosage: 1 DF DAILY
     Route: 048
  15. COLECALCIFEROL [Concomitant]
     Active Substance: CHOLECALCIFEROL
     Dosage: 1 DF UNK
     Route: 048
  16. NIFEDIPINE. [Concomitant]
     Active Substance: NIFEDIPINE
     Route: 048

REACTIONS (4)
  - Acute kidney injury [Unknown]
  - Oedema peripheral [Unknown]
  - Renal impairment [Unknown]
  - Drug prescribing error [Unknown]
